FAERS Safety Report 23923590 (Version 2)
Quarter: 2025Q3

REPORT INFORMATION
  Report Type: Spontaneous
  Country: US (occurrence: US)
  Receive Date: 20240531
  Receipt Date: 20250902
  Transmission Date: 20251020
  Serious: Yes (Other)
  Sender: AMGEN
  Company Number: US-AMGEN-USASP2024102869

PATIENT

DRUGS (4)
  1. RITUXIMAB [Suspect]
     Active Substance: RITUXIMAB
     Indication: Non-Hodgkin^s lymphoma refractory
     Dosage: 375 MILLIGRAM/SQ. METER, QWK, (CYCLE 1)
     Route: 042
  2. RITUXIMAB [Suspect]
     Active Substance: RITUXIMAB
     Route: 042
  3. EVORPACEPT [Suspect]
     Active Substance: EVORPACEPT
     Indication: Non-Hodgkin^s lymphoma refractory
     Route: 040
  4. LENALIDOMIDE [Concomitant]
     Active Substance: LENALIDOMIDE
     Indication: Non-Hodgkin^s lymphoma refractory
     Route: 048

REACTIONS (28)
  - Aspartate aminotransferase increased [Unknown]
  - Alanine aminotransferase increased [Unknown]
  - Neutropenia [Unknown]
  - Infection [Unknown]
  - Rash [Unknown]
  - Anaemia [Unknown]
  - Blood alkaline phosphatase increased [Unknown]
  - Neuropathy peripheral [Unknown]
  - Gastric neuroendocrine carcinoma [Unknown]
  - Non-Hodgkin^s lymphoma [Unknown]
  - Prostate cancer [Unknown]
  - Infusion related reaction [Unknown]
  - Thrombocytopenia [Unknown]
  - Blood creatinine increased [Unknown]
  - Musculoskeletal pain [Unknown]
  - Constipation [Unknown]
  - Hyponatraemia [Unknown]
  - Blood bilirubin increased [Unknown]
  - Hypercalcaemia [Unknown]
  - Dry mouth [Unknown]
  - Mucosal inflammation [Unknown]
  - COVID-19 [Unknown]
  - Headache [Unknown]
  - Diarrhoea [Unknown]
  - Dizziness [Unknown]
  - Nausea [Unknown]
  - Fatigue [Unknown]
  - Creatinine renal clearance decreased [Unknown]
